FAERS Safety Report 21899078 (Version 2)
Quarter: 2023Q1

REPORT INFORMATION
  Report Type: Spontaneous
  Country: AT (occurrence: AT)
  Receive Date: 20230123
  Receipt Date: 20230131
  Transmission Date: 20230418
  Serious: Yes (Life-Threatening, Hospitalization, Other)
  Sender: FDA-Public Use
  Company Number: AT-GE HEALTHCARE-2023CSU000358

PATIENT
  Age: 44 Year
  Sex: Male
  Weight: 105 kg

DRUGS (3)
  1. CLARISCAN [Suspect]
     Active Substance: GADOTERATE MEGLUMINE
     Indication: Magnetic resonance imaging
     Dosage: 15 ML, SINGLE
     Route: 042
     Dates: start: 20230118, end: 20230118
  2. CLARISCAN [Suspect]
     Active Substance: GADOTERATE MEGLUMINE
     Indication: Mass
  3. CLARISCAN [Suspect]
     Active Substance: GADOTERATE MEGLUMINE
     Indication: Myelopathy

REACTIONS (5)
  - Circulatory collapse [Recovered/Resolved]
  - Erythema [Recovering/Resolving]
  - Urticaria [Recovered/Resolved]
  - Vomiting [Recovered/Resolved]
  - Nausea [Recovering/Resolving]

NARRATIVE: CASE EVENT DATE: 20230118
